FAERS Safety Report 14425173 (Version 1)
Quarter: 2018Q1

REPORT INFORMATION
  Report Type: Spontaneous
  Country: US (occurrence: US)
  Receive Date: 20180123
  Receipt Date: 20180123
  Transmission Date: 20180509
  Serious: No
  Sender: FDA-Public Use
  Company Number: US-PFIZER INC-2018024106

PATIENT
  Age: 75 Year
  Sex: Female
  Weight: 92.99 kg

DRUGS (5)
  1. PREMARIN [Suspect]
     Active Substance: ESTROGENS, CONJUGATED
     Dosage: 0.625 MG, 2X/DAY (TAKE ONE HALF OF A TABLET)
     Dates: start: 201712
  2. PREMARIN [Suspect]
     Active Substance: ESTROGENS, CONJUGATED
     Dosage: .625 MG, 2X/DAY (ONE IN THE MORNING AND ONE IN THE EVENING)
  3. PREMARIN [Suspect]
     Active Substance: ESTROGENS, CONJUGATED
     Dosage: 0.625 MG, DAILY
     Dates: start: 1978
  4. SYNTHROID [Concomitant]
     Active Substance: LEVOTHYROXINE SODIUM
     Dosage: 100 UG, 1X/DAY, (TAKES 2 EXTRA EVERY WEEK)
  5. PREMARIN [Suspect]
     Active Substance: ESTROGENS, CONJUGATED
     Dosage: 0.625 MG, WEEKLY

REACTIONS (4)
  - Abdominal pain upper [Not Recovered/Not Resolved]
  - Therapeutic response unexpected [Unknown]
  - Drug prescribing error [Unknown]
  - Blood pressure decreased [Unknown]
